FAERS Safety Report 21908010 (Version 2)
Quarter: 2023Q1

REPORT INFORMATION
  Report Type: Spontaneous
  Country: US (occurrence: US)
  Receive Date: 20230125
  Receipt Date: 20230130
  Transmission Date: 20230418
  Serious: Yes (Life-Threatening, Other)
  Sender: FDA-Public Use
  Company Number: US-PFIZER INC-PV202300015106

PATIENT
  Age: 36 Year
  Sex: Male

DRUGS (3)
  1. METHYLPREDNISOLONE SODIUM SUCCINATE [Suspect]
     Active Substance: METHYLPREDNISOLONE SODIUM SUCCINATE
     Indication: Anaphylactic reaction
     Dosage: 125 MG
     Route: 042
  2. EPINEPHRINE [Concomitant]
     Active Substance: EPINEPHRINE
     Indication: Anaphylactic reaction
     Dosage: 0.3 ML, 0.1:10000 AQUEOUS
     Route: 058
  3. DIPHENHYDRAMINE [Concomitant]
     Active Substance: DIPHENHYDRAMINE
     Indication: Anaphylactic reaction
     Dosage: 50 MG
     Route: 042

REACTIONS (5)
  - Tumour lysis syndrome [Recovered/Resolved]
  - Hyperuricaemia [Recovered/Resolved]
  - Blood creatinine increased [Recovered/Resolved]
  - Hyperphosphataemia [Recovered/Resolved]
  - Hypocalcaemia [Recovered/Resolved]
